APPROVED DRUG PRODUCT: LEXETTE
Active Ingredient: HALOBETASOL PROPIONATE
Strength: 0.05%
Dosage Form/Route: AEROSOL, FOAM;TOPICAL
Application: N210566 | Product #001 | TE Code: AB
Applicant: MAYNE PHARMA LLC
Approved: May 24, 2018 | RLD: Yes | RS: Yes | Type: RX

PATENTS:
Patent 11020407 | Expires: Nov 30, 2036
Patent 10857159 | Expires: Nov 30, 2036
Patent 10857159*PED | Expires: May 30, 2037